FAERS Safety Report 8512525-8 (Version None)
Quarter: 2012Q3

REPORT INFORMATION
  Report Type: 
  Country: None (occurrence: None)
  Receive Date: 20120716
  Receipt Date: 20120711
  Transmission Date: 20120928
  Serious: Yes (Hospitalization)
  Sender: FDA-Public Use
  Company Number: FR-GLAXOSMITHKLINE-B0814033A

PATIENT
  Age: 87 Year
  Sex: Male

DRUGS (9)
  1. ACETAMINOPHEN [Concomitant]
     Dosage: 1G FOUR TIMES PER DAY
     Route: 065
  2. OROKEN [Concomitant]
     Indication: URINARY TRACT INFECTION
     Route: 065
     Dates: start: 20120413, end: 20120418
  3. OMEPRAZOLE [Concomitant]
     Dosage: 20MG PER DAY
     Route: 065
  4. AMLODIPINE BESYLATE [Concomitant]
     Dosage: 5MG PER DAY
     Route: 065
  5. FERROUS SULFATE TAB [Concomitant]
     Route: 065
  6. PAROXETINE HCL [Suspect]
     Indication: PRODUCT USED FOR UNKNOWN INDICATION
     Route: 048
     Dates: end: 20120418
  7. ASPIRIN [Concomitant]
     Dosage: 75MG PER DAY
     Route: 065
  8. ATORVASTATIN [Concomitant]
     Dosage: 40MG PER DAY
     Route: 065
  9. DUPHALAC [Concomitant]
     Route: 065

REACTIONS (3)
  - VASCULAR PURPURA [None]
  - LEUKOCYTOCLASTIC VASCULITIS [None]
  - INFLAMMATION [None]
